FAERS Safety Report 19484900 (Version 2)
Quarter: 2021Q3

REPORT INFORMATION
  Report Type: Report from Study
  Country: US (occurrence: US)
  Receive Date: 20210702
  Receipt Date: 20210823
  Transmission Date: 20211014
  Serious: Yes (Life-Threatening, Hospitalization)
  Sender: FDA-Public Use
  Company Number: NVSC2021US006808

PATIENT
  Age: 11 Year
  Sex: Female

DRUGS (2)
  1. IMMUNE GLOBULIN [Concomitant]
     Indication: B-CELL APLASIA
     Dosage: UNK, MONTHLY
     Route: 065
     Dates: start: 20180705
  2. KYMRIAH [Suspect]
     Active Substance: TISAGENLECLEUCEL
     Indication: ACUTE LYMPHOCYTIC LEUKAEMIA
     Dosage: UNK
     Route: 042
     Dates: start: 20170815, end: 20170816

REACTIONS (2)
  - Multisystem inflammatory syndrome in children [Recovered/Resolved with Sequelae]
  - Acute respiratory failure [Recovered/Resolved with Sequelae]

NARRATIVE: CASE EVENT DATE: 20201220
